FAERS Safety Report 18252585 (Version 2)
Quarter: 2020Q3

REPORT INFORMATION
  Report Type: Report from Study
  Country: JP (occurrence: JP)
  Receive Date: 20200910
  Receipt Date: 20200918
  Transmission Date: 20201103
  Serious: Yes (Other)
  Sender: FDA-Public Use
  Company Number: JP-ACCORD-200049

PATIENT
  Age: 36 Year
  Sex: Female

DRUGS (1)
  1. CARBOPLATIN. [Suspect]
     Active Substance: CARBOPLATIN
     Indication: ENDOMETRIAL CANCER STAGE IV
     Dosage: PRIOR 9 DOSES

REACTIONS (5)
  - Hypoxia [Unknown]
  - Abdominal pain [Unknown]
  - Cold sweat [Unknown]
  - Hypersensitivity [Unknown]
  - Nausea [Unknown]
